FAERS Safety Report 8256393-0 (Version None)
Quarter: 2012Q2

REPORT INFORMATION
  Report Type: 
  Country: None (occurrence: None)
  Receive Date: 20120403
  Receipt Date: 20120321
  Transmission Date: 20120825
  Serious: Yes (Hospitalization)
  Sender: FDA-Public Use
  Company Number: US-ELI_LILLY_AND_COMPANY-US201203007488

PATIENT
  Age: 81 Year

DRUGS (2)
  1. CYMBALTA [Suspect]
     Indication: DEPRESSION
     Dosage: 30 MG, QD
  2. CYMBALTA [Suspect]
     Dosage: 30 MG, QD
     Dates: start: 20120301

REACTIONS (7)
  - NAUSEA [None]
  - DIZZINESS [None]
  - POOR QUALITY SLEEP [None]
  - MALAISE [None]
  - URINARY TRACT INFECTION [None]
  - HYPERHIDROSIS [None]
  - FEELING ABNORMAL [None]
